FAERS Safety Report 6907885-5 (Version None)
Quarter: 2010Q3

REPORT INFORMATION
  Report Type: 
  Country: None (occurrence: None)
  Receive Date: 20100805
  Receipt Date: 20100722
  Transmission Date: 20110219
  Serious: Yes (Hospitalization)
  Sender: FDA-Public Use
  Company Number: PHFR2010GB01526

PATIENT
  Sex: Male

DRUGS (1)
  1. CLOZARIL [Suspect]
     Indication: SCHIZOPHRENIA
     Dosage: 550 MG/DAY
     Route: 048
     Dates: start: 20040920

REACTIONS (4)
  - ANAEMIA [None]
  - CIRCULATORY COLLAPSE [None]
  - DIARRHOEA [None]
  - VIRAL INFECTION [None]
